FAERS Safety Report 21220551 (Version 1)
Quarter: 2022Q3

REPORT INFORMATION
  Report Type: Other
  Country: TR (occurrence: None)
  Receive Date: 20220817
  Receipt Date: 20220817
  Transmission Date: 20221027
  Serious: Yes (Death)
  Sender: FDA-Public Use
  Company Number: TR-ROCHE-3157734

PATIENT
  Age: 92 Year
  Sex: Male

DRUGS (5)
  1. TOCILIZUMAB [Suspect]
     Active Substance: TOCILIZUMAB
     Indication: COVID-19
     Route: 065
  2. CEFTRIAXONE [Suspect]
     Active Substance: CEFTRIAXONE
     Indication: COVID-19
     Route: 065
  3. DEXAMETHASONE [Concomitant]
     Active Substance: DEXAMETHASONE
     Dosage: DEXAMETHASONE 8 DAYS-6 MG, 1 DAY-4 MG, 2 DAYS-2 MG)
  4. MEROPENEM [Concomitant]
     Active Substance: MEROPENEM
  5. FAVIPIRAVIR [Concomitant]
     Active Substance: FAVIPIRAVIR

REACTIONS (2)
  - Off label use [Unknown]
  - Respiratory failure [Fatal]
